FAERS Safety Report 26197085 (Version 1)
Quarter: 2025Q4

REPORT INFORMATION
  Report Type: Spontaneous
  Country: IL (occurrence: IL)
  Receive Date: 20251224
  Receipt Date: 20251224
  Transmission Date: 20260118
  Serious: No
  Sender: ASTELLAS
  Company Number: IL-ASTELLAS-2025-AER-070108

PATIENT
  Age: 80 Year
  Sex: Female

DRUGS (3)
  1. VEOZAH [Suspect]
     Active Substance: FEZOLINETANT
     Indication: Hot flush
     Route: 048
     Dates: start: 20250921
  2. VEOZAH [Suspect]
     Active Substance: FEZOLINETANT
     Dosage: EVERY OTHER DAY
     Route: 048
  3. EXFORGE [Concomitant]
     Active Substance: AMLODIPINE BESYLATE\VALSARTAN
     Indication: Hypertension
     Route: 065

REACTIONS (5)
  - Headache [Recovering/Resolving]
  - Fatigue [Unknown]
  - Asthenia [Unknown]
  - Alanine aminotransferase increased [Unknown]
  - Intentional product misuse [Unknown]
